FAERS Safety Report 5331722-6 (Version None)
Quarter: 2007Q2

REPORT INFORMATION
  Report Type: 
  Country: None (occurrence: None)
  Receive Date: 20070517
  Receipt Date: 20070501
  Transmission Date: 20071010
  Serious: Yes (Hospitalization)
  Sender: FDA-Public Use
  Company Number: 8023538

PATIENT
  Age: 19 Year
  Sex: Male
  Weight: 106.82 kg

DRUGS (3)
  1. KEPPRA [Suspect]
     Indication: CONVULSION
     Dosage: 1000 MG /D PO
     Route: 048
     Dates: start: 20070316, end: 20070326
  2. DEPAKOTE [Suspect]
     Indication: PARTIAL SEIZURES
     Dosage: 1750 MG /D  PO
     Route: 048
     Dates: start: 20070315
  3. ZOLOFT [Concomitant]

REACTIONS (5)
  - AGGRESSION [None]
  - CONVERSION DISORDER [None]
  - DISORIENTATION [None]
  - PARTIAL SEIZURES [None]
  - REFUSAL OF TREATMENT BY RELATIVE [None]
